FAERS Safety Report 16462986 (Version 4)
Quarter: 2020Q1

REPORT INFORMATION
  Report Type: Spontaneous
  Country: US (occurrence: US)
  Receive Date: 20190621
  Receipt Date: 20200116
  Transmission Date: 20200409
  Serious: Yes (Hospitalization)
  Sender: FDA-Public Use
  Company Number: US-TEVA-2019-US-1064007

PATIENT
  Sex: Male
  Weight: 53.35 kg

DRUGS (4)
  1. EPOPROSTENOL. [Suspect]
     Active Substance: EPOPROSTENOL
     Dosage: 77 NG PER KG PER MIN
     Route: 065
  2. OPSUMIT [Concomitant]
     Active Substance: MACITENTAN
  3. EPOPROSTENOL. [Suspect]
     Active Substance: EPOPROSTENOL
     Indication: PULMONARY HYPERTENSION
     Dosage: 87 NG PER KG PER MIN, FREQUENCY IV CONT
     Route: 065
     Dates: start: 20161004
  4. EPOPROSTENOL. [Suspect]
     Active Substance: EPOPROSTENOL
     Dosage: 1.5MG/VIAL,80 NG PER KG PER MIN,INTREVENOUS CONTINOUS
     Route: 042
     Dates: start: 20161004

REACTIONS (3)
  - Liver transplant [Unknown]
  - Sepsis [Unknown]
  - Vascular device infection [Unknown]
